FAERS Safety Report 21898729 (Version 1)
Quarter: 2023Q1

REPORT INFORMATION
  Report Type: Spontaneous
  Country: US (occurrence: None)
  Receive Date: 20230122
  Receipt Date: 20230122
  Transmission Date: 20230418
  Serious: Yes (Life-Threatening, Disabling)
  Sender: FDA-Public Use
  Company Number: None

PATIENT
  Age: 45 Year
  Sex: Female
  Weight: 70.2 kg

DRUGS (1)
  1. LANTUS SOLOSTAR [Suspect]
     Active Substance: INSULIN GLARGINE
     Indication: Type 1 diabetes mellitus
     Dates: start: 20050101, end: 20220815

REACTIONS (5)
  - Blood glucose decreased [None]
  - Product quality issue [None]
  - Manufacturing production issue [None]
  - Product formulation issue [None]
  - Therapeutic response decreased [None]

NARRATIVE: CASE EVENT DATE: 20220401
